FAERS Safety Report 14584514 (Version 1)
Quarter: 2018Q1

REPORT INFORMATION
  Report Type: Spontaneous
  Country: US (occurrence: US)
  Receive Date: 20180301
  Receipt Date: 20180301
  Transmission Date: 20180509
  Serious: Yes (Other)
  Sender: FDA-Public Use
  Company Number: US-UNICHEM PHARMACEUTICALS (USA) INC-UCM201801-000023

PATIENT
  Age: 93 Year
  Sex: Female

DRUGS (11)
  1. MELOXICAM. [Suspect]
     Active Substance: MELOXICAM
     Indication: PAIN
     Dates: end: 20180201
  2. FOLATE [Concomitant]
     Active Substance: FOLATE SODIUM
  3. VITAMIN E [Concomitant]
     Active Substance: .ALPHA.-TOCOPHEROL
  4. HYALURONIC ACID [Concomitant]
     Active Substance: HYALURONIC ACID
  5. TAURINE [Concomitant]
     Active Substance: TAURINE
     Indication: OEDEMA
  6. CULTURELLE [Concomitant]
     Active Substance: LACTOBACILLUS RHAMNOSUS
     Indication: IMMUNE SYSTEM DISORDER
  7. VITAMIN C [Concomitant]
     Active Substance: ASCORBIC ACID
  8. MAGNESIUM [Concomitant]
     Active Substance: MAGNESIUM
  9. SPIRULINA [Concomitant]
     Active Substance: SPIRULINA
  10. ASTRAGULUS [Concomitant]
  11. CURAMED [Concomitant]

REACTIONS (4)
  - Internal haemorrhage [Recovered/Resolved]
  - Product use in unapproved indication [Unknown]
  - Faeces discoloured [Recovered/Resolved]
  - Therapeutic response unexpected [Unknown]
